FAERS Safety Report 19661177 (Version 1)
Quarter: 2021Q3

REPORT INFORMATION
  Report Type: Spontaneous
  Country: US (occurrence: US)
  Receive Date: 20210805
  Receipt Date: 20210805
  Transmission Date: 20211014
  Serious: Yes (Death)
  Sender: FDA-Public Use
  Company Number: None

PATIENT
  Sex: Female
  Weight: 71.6 kg

DRUGS (11)
  1. TYLENOL [Concomitant]
     Active Substance: ACETAMINOPHEN
  2. ANASTRAZOLE [Concomitant]
     Active Substance: ANASTROZOLE
  3. ABILIFY [Concomitant]
     Active Substance: ARIPIPRAZOLE
  4. OXYCODONE [Concomitant]
     Active Substance: OXYCODONE
  5. ZOFRAN [Concomitant]
     Active Substance: ONDANSETRON HYDROCHLORIDE
  6. FLORASTOR [Concomitant]
     Active Substance: SACCHAROMYCES CEREVISIAE
  7. LASIX [Concomitant]
     Active Substance: FUROSEMIDE
  8. IBRANCE [Suspect]
     Active Substance: PALBOCICLIB
     Indication: MALIGNANT NIPPLE NEOPLASM FEMALE
     Route: 048
  9. VITAMIN D [Concomitant]
     Active Substance: VITAMIN D NOS
  10. MULTIVITAMIN ADULT [Concomitant]
  11. VIRT?PHOS 250 NEUTRAL [Concomitant]

REACTIONS (1)
  - Death [None]
